FAERS Safety Report 19985976 (Version 1)
Quarter: 2021Q4

REPORT INFORMATION
  Report Type: Report from Study
  Country: FR (occurrence: FR)
  Receive Date: 20211022
  Receipt Date: 20211022
  Transmission Date: 20220303
  Serious: Yes (Hospitalization)
  Sender: FDA-Public Use
  Company Number: FR-MYLANLABS-2021M1075013

PATIENT
  Age: 63 Year
  Sex: Male

DRUGS (5)
  1. PREDNISONE [Suspect]
     Active Substance: PREDNISONE
     Indication: Nodular lymphocyte predominant Hodgkin lymphoma
     Dosage: R-CHOP THERAPY
     Route: 065
  2. RITUXIMAB [Suspect]
     Active Substance: RITUXIMAB
     Indication: Nodular lymphocyte predominant Hodgkin lymphoma
     Dosage: R-CHOP THERAPY
     Route: 065
  3. CYCLOPHOSPHAMIDE [Suspect]
     Active Substance: CYCLOPHOSPHAMIDE
     Indication: Nodular lymphocyte predominant Hodgkin lymphoma
     Dosage: R-CHOP THERAPY
     Route: 065
  4. DOXORUBICIN [Suspect]
     Active Substance: DOXORUBICIN
     Indication: Nodular lymphocyte predominant Hodgkin lymphoma
     Dosage: R-CHOP THERAPY
     Route: 065
  5. ONCOVIN [Suspect]
     Active Substance: VINCRISTINE SULFATE
     Indication: Nodular lymphocyte predominant Hodgkin lymphoma
     Dosage: R-CHOP THERAPY
     Route: 065

REACTIONS (1)
  - COVID-19 [Not Recovered/Not Resolved]

NARRATIVE: CASE EVENT DATE: 20200101
